FAERS Safety Report 10641551 (Version 2)
Quarter: 2015Q4

REPORT INFORMATION
  Report Type: Spontaneous
  Country: US (occurrence: US)
  Receive Date: 20141209
  Receipt Date: 20151204
  Transmission Date: 20160304
  Serious: No
  Sender: FDA-Public Use
  Company Number: US-BAUSCH-BL-2014-007271

PATIENT
  Age: 69 Year
  Sex: Female

DRUGS (1)
  1. XENAZINE [Suspect]
     Active Substance: TETRABENAZINE
     Indication: HUNTINGTON^S DISEASE
     Route: 048
     Dates: start: 20141003, end: 201501

REACTIONS (4)
  - Malaise [Recovered/Resolved]
  - Vomiting [Recovered/Resolved]
  - Feeling abnormal [Not Recovered/Not Resolved]
  - Constipation [Not Recovered/Not Resolved]

NARRATIVE: CASE EVENT DATE: 20141017
